FAERS Safety Report 23177100 (Version 1)
Quarter: 2023Q4

REPORT INFORMATION
  Report Type: Spontaneous
  Country: US (occurrence: US)
  Receive Date: 20231113
  Receipt Date: 20231113
  Transmission Date: 20240110
  Serious: No
  Sender: FDA-Public Use
  Company Number: US-SA-SAC20231101001643

PATIENT
  Sex: Male

DRUGS (1)
  1. DUPIXENT [Suspect]
     Active Substance: DUPILUMAB
     Indication: Dermatitis atopic
     Dosage: 300 MG, 1X, LOADING DOSE
     Route: 058

REACTIONS (4)
  - Peripheral swelling [Unknown]
  - Erythema [Unknown]
  - Hypersensitivity [Unknown]
  - Incorrect dose administered [Unknown]
